FAERS Safety Report 9372159 (Version 1)
Quarter: 2013Q2

REPORT INFORMATION
  Report Type: Spontaneous
  Country: US (occurrence: None)
  Receive Date: 20130619
  Receipt Date: 20130619
  Transmission Date: 20140414
  Serious: Yes (Other)
  Sender: FDA-Public Use
  Company Number: 2013036202

PATIENT
  Age: 78 Year
  Sex: Male
  Weight: 63.5 kg

DRUGS (14)
  1. PRIVIGEN (IMMUNE GLOBULIN INTRAVENOUS (HUMAN) 10% LIQUID) [Suspect]
     Indication: CHRONIC INFLAMMATORY DEMYELINATING POLYRADICULONEUROPATHY
     Route: 042
     Dates: start: 20130520, end: 20130522
  2. TERAZOSIN [Concomitant]
  3. ASPIRIN (ACETYLSALICYCLIC ACID) [Concomitant]
  4. PRILOSEC [Concomitant]
  5. MIRALEX (MACROGEL) [Concomitant]
  6. METAMUCIL (PLANTAGO OVATA) [Concomitant]
  7. CALCIUM (CALCIUM) [Concomitant]
  8. MULTIVITAMIN (DAILY MULTIVITAMIN) [Concomitant]
  9. ACETAMINOPHEN (PARACETAMOL) [Concomitant]
  10. DIPHENHYDRAMINE (DIPHENHYDRAMINE) [Concomitant]
  11. HEPARIN (HEPARIN) [Concomitant]
  12. SODIUM CHLORIDE [Concomitant]
  13. EPI PEN (EPINEPHRINE) [Concomitant]
  14. GABAPENTIN (GABPENTIN) [Concomitant]

REACTIONS (3)
  - Infusion site pain [None]
  - Thrombosis [None]
  - Headache [None]
